FAERS Safety Report 5989071-9 (Version None)
Quarter: 2008Q4

REPORT INFORMATION
  Report Type: 
  Country: None (occurrence: None)
  Receive Date: 20081209
  Receipt Date: 20081209
  Transmission Date: 20090506
  Serious: Yes (Hospitalization)
  Sender: FDA-Public Use
  Company Number: None

PATIENT
  Age: 27 Year
  Sex: Female
  Weight: 54.4316 kg

DRUGS (2)
  1. COLD REMEDY GEL SWABS ZINCUM GLUCONICUM 2X ZICAM [Suspect]
     Indication: SNEEZING
     Dosage: ZINCUM GLUCONICUM 2X 4HOURS FOR 48 HOUR NASAL
     Route: 045
     Dates: start: 20081202, end: 20081204
  2. COLD REMEDY GEL SWABS ZINCUM GLUCONICUM 2X ZICAM [Suspect]
     Indication: THROAT IRRITATION
     Dosage: ZINCUM GLUCONICUM 2X 4HOURS FOR 48 HOUR NASAL
     Route: 045
     Dates: start: 20081202, end: 20081204

REACTIONS (10)
  - DISCOMFORT [None]
  - GINGIVAL PAIN [None]
  - GINGIVAL SWELLING [None]
  - IMPAIRED WORK ABILITY [None]
  - NASAL DISCOMFORT [None]
  - NASAL OEDEMA [None]
  - OEDEMA MOUTH [None]
  - ORAL PAIN [None]
  - RHINALGIA [None]
  - VISION BLURRED [None]
